FAERS Safety Report 8216968-1 (Version None)
Quarter: 2012Q1

REPORT INFORMATION
  Report Type: 
  Country: None (occurrence: None)
  Receive Date: 20120319
  Receipt Date: 20120308
  Transmission Date: 20120608
  Serious: Yes (Hospitalization, Other)
  Sender: FDA-Public Use
  Company Number: JP-AMGEN-JPNCT2011050561

PATIENT
  Age: 60 Year
  Sex: Male
  Weight: 63 kg

DRUGS (12)
  1. MINOCYCLINE HCL [Concomitant]
     Route: 048
     Dates: start: 20101209, end: 20110110
  2. DEXAMETHASONE SODIUM PHOSPHATE [Concomitant]
     Route: 042
     Dates: start: 20101028, end: 20110310
  3. FAMOTIDINE [Concomitant]
     Route: 042
     Dates: start: 20101028, end: 20110310
  4. HIRUDOID [Concomitant]
     Dosage: UNK
     Route: 062
     Dates: start: 20110217, end: 20110217
  5. PANITUMUMAB [Suspect]
     Dosage: 6 MG/KG, Q2WK
     Route: 041
     Dates: start: 20110106, end: 20110310
  6. DECADRON [Concomitant]
     Indication: PROPHYLAXIS OF NAUSEA AND VOMITING
     Route: 048
     Dates: start: 20101028, end: 20110310
  7. PANITUMUMAB [Suspect]
     Dosage: 6 MG/KG, Q2WK
     Route: 041
     Dates: start: 20110519, end: 20110630
  8. LANSOPRAZOLE [Concomitant]
     Indication: GASTROOESOPHAGEAL REFLUX DISEASE
     Dosage: UNK
     Route: 048
  9. NORVASC [Concomitant]
     Indication: HYPERTENSION
     Dosage: UNK
     Route: 048
  10. PANITUMUMAB [Suspect]
     Indication: COLORECTAL CANCER
     Dosage: 6 MG/KG, Q2WK
     Route: 041
     Dates: start: 20101007, end: 20101209
  11. CORTICOSTEROIDS [Concomitant]
     Indication: PROPHYLAXIS
     Dosage: UNK
     Route: 065
  12. LOCOID [Concomitant]
     Route: 062
     Dates: start: 20101028, end: 20110127

REACTIONS (3)
  - PARONYCHIA [None]
  - PAPULE [None]
  - ORGANISING PNEUMONIA [None]
